FAERS Safety Report 18209528 (Version 2)
Quarter: 2020Q3

REPORT INFORMATION
  Report Type: Spontaneous
  Country: US (occurrence: US)
  Receive Date: 20200828
  Receipt Date: 20200914
  Transmission Date: 20201103
  Serious: No
  Sender: FDA-Public Use
  Company Number: US-VIFOR (INTERNATIONAL) INC.-VIT-2020-08883

PATIENT
  Sex: Female

DRUGS (11)
  1. CINACALCET. [Concomitant]
     Active Substance: CINACALCET
  2. VELTASSA [Suspect]
     Active Substance: PATIROMER
     Route: 048
  3. VITAMIN B [Concomitant]
     Active Substance: VITAMIN B
  4. VELTASSA [Suspect]
     Active Substance: PATIROMER
     Route: 048
     Dates: start: 2019
  5. ASPIRIN. [Concomitant]
     Active Substance: ASPIRIN
  6. VITAMIN C [Concomitant]
     Active Substance: ASCORBIC ACID
  7. VELTASSA [Suspect]
     Active Substance: PATIROMER
  8. FAMOTIDINE. [Concomitant]
     Active Substance: FAMOTIDINE
  9. VELTASSA [Suspect]
     Active Substance: PATIROMER
     Indication: HYPERKALAEMIA
  10. WARFARIN [Concomitant]
     Active Substance: WARFARIN
  11. METOPROLOL. [Concomitant]
     Active Substance: METOPROLOL

REACTIONS (6)
  - Malaise [Unknown]
  - Suspected product quality issue [Unknown]
  - Off label use [Unknown]
  - Product packaging issue [Unknown]
  - Blood potassium increased [Unknown]
  - Product dose omission issue [Unknown]
